FAERS Safety Report 22528700 (Version 3)
Quarter: 2024Q2

REPORT INFORMATION
  Report Type: Other
  Country: DE (occurrence: None)
  Receive Date: 20230607
  Receipt Date: 20240610
  Transmission Date: 20240716
  Serious: Yes (Hospitalization)
  Sender: FDA-Public Use
  Company Number: DE-ROCHE-2766746

PATIENT
  Age: 44 Year
  Sex: Female

DRUGS (19)
  1. OCREVUS [Suspect]
     Active Substance: OCRELIZUMAB
     Indication: Relapsing-remitting multiple sclerosis
     Route: 042
     Dates: start: 20191017
  2. OCREVUS [Suspect]
     Active Substance: OCRELIZUMAB
     Route: 042
     Dates: start: 20200430
  3. COMIRNATY (TOZINAMERAN) [Suspect]
     Active Substance: TOZINAMERAN
     Indication: COVID-19 immunisation
     Dosage: FIRST DOSE
     Route: 065
     Dates: start: 20210426, end: 20210426
  4. COMIRNATY (TOZINAMERAN) [Suspect]
     Active Substance: TOZINAMERAN
     Dosage: SECOND DOSE
     Route: 065
     Dates: start: 20210607, end: 20210607
  5. SPASMEX (GERMANY) [Concomitant]
  6. PANTOPRAZOLE SODIUM [Concomitant]
     Active Substance: PANTOPRAZOLE SODIUM
  7. BUDESONIDE [Concomitant]
     Active Substance: BUDESONIDE
  8. CHOLECALCIFEROL [Concomitant]
     Active Substance: CHOLECALCIFEROL
  9. BACLOFEN [Concomitant]
     Active Substance: BACLOFEN
  10. PREGABALIN [Concomitant]
     Active Substance: PREGABALIN
  11. VITAMIN B12 [Concomitant]
     Active Substance: CYANOCOBALAMIN
  12. DULOXETINE [Concomitant]
     Active Substance: DULOXETINE
  13. TIZANIDINE [Concomitant]
     Active Substance: TIZANIDINE
     Dosage: 0-0-2
  14. SALOFALK [Concomitant]
     Dosage: 500 UNIT NOT REPORTED
  15. NABIXIMOLS [Concomitant]
     Active Substance: NABIXIMOLS
     Dosage: 2-2-2-2
  16. COMIRNATY [Concomitant]
     Dates: start: 20210426, end: 20210426
  17. COMIRNATY [Concomitant]
     Dosage: WITH BOOSTER VACCINE
     Dates: start: 20210607, end: 20210607
  18. TRIAMCINOLONE ACETONIDE [Concomitant]
     Active Substance: TRIAMCINOLONE ACETONIDE
  19. SPIKEVAX [Concomitant]

REACTIONS (11)
  - Pseudomonas infection [Recovering/Resolving]
  - Myocardial infarction [Recovered/Resolved]
  - SARS-CoV-2 antibody test negative [Not Recovered/Not Resolved]
  - B-lymphocyte count decreased [Recovered/Resolved]
  - COVID-19 [Recovered/Resolved]
  - Cough [Recovered/Resolved]
  - Heart rate increased [Recovered/Resolved]
  - Cystocele [Recovering/Resolving]
  - Rectal prolapse [Recovering/Resolving]
  - Dyspepsia [Not Recovered/Not Resolved]
  - Constipation [Not Recovered/Not Resolved]

NARRATIVE: CASE EVENT DATE: 20210101
